FAERS Safety Report 8123920-3 (Version None)
Quarter: 2012Q1

REPORT INFORMATION
  Report Type: 
  Country: None (occurrence: None)
  Receive Date: 20120209
  Receipt Date: 20120126
  Transmission Date: 20120608
  Serious: Yes (Other)
  Sender: FDA-Public Use
  Company Number: RU-RANBAXY-2012R3-51922

PATIENT

DRUGS (6)
  1. CLARITHROMYCIN [Suspect]
     Indication: PELVIC INFLAMMATORY DISEASE
     Dosage: UNK
     Route: 048
     Dates: start: 20120105, end: 20120111
  2. ESSENTIALE [Concomitant]
     Indication: PRODUCT USED FOR UNKNOWN INDICATION
     Dosage: UNK
     Route: 048
     Dates: start: 20120119
  3. DAZOLIC [Concomitant]
     Indication: PELVIC INFLAMMATORY DISEASE
     Dosage: UNK
     Route: 048
     Dates: start: 20120105, end: 20120111
  4. DAZOLIC [Concomitant]
     Dosage: UNK
     Route: 048
     Dates: start: 20120112
  5. LEVONORGESTREL [Concomitant]
     Indication: PRODUCT USED FOR UNKNOWN INDICATION
     Dosage: UNK
     Route: 065
     Dates: start: 20111230
  6. CLARITHROMYCIN [Concomitant]
     Indication: PELVIC INFLAMMATORY DISEASE
     Dosage: UNK
     Route: 048
     Dates: start: 20120112, end: 20120119

REACTIONS (4)
  - DIZZINESS [None]
  - ASTHENIA [None]
  - LOSS OF CONSCIOUSNESS [None]
  - ABDOMINAL DISCOMFORT [None]
